FAERS Safety Report 7903601-9 (Version None)
Quarter: 2011Q4

REPORT INFORMATION
  Report Type: 
  Country: None (occurrence: None)
  Receive Date: 20111109
  Receipt Date: 20111027
  Transmission Date: 20120403
  Serious: Yes (Hospitalization, Other)
  Sender: FDA-Public Use
  Company Number: US-ELI_LILLY_AND_COMPANY-US201111000297

PATIENT
  Sex: Female

DRUGS (14)
  1. CALCIUM 600 PLUS VITAMIN D [Concomitant]
     Dosage: UNK IU, UNK
  2. VITAMIN D [Concomitant]
     Dosage: 50000 IU, UNK
  3. AVANDIA [Concomitant]
     Dosage: 8 MG, QD
  4. SPIRONOLACTONE [Concomitant]
  5. FORTEO [Suspect]
     Indication: OSTEOPENIA
     Dosage: 20 UG, QD
     Dates: start: 20110301
  6. NEXIUM [Concomitant]
     Dosage: 40 MG, QD
  7. JANUVIA [Concomitant]
     Dosage: UNK IU, UNK
  8. WELCHOL [Concomitant]
     Dosage: 1250 MG, QD
  9. CRESTOR [Concomitant]
     Dosage: 20 MG, QD
  10. SYNTHROID [Concomitant]
     Dosage: 88 UG, QD
  11. ATACAND [Concomitant]
     Dosage: 20 MG, UNK
  12. LEXAPRO [Concomitant]
     Dosage: 20 UNK, UNK
  13. FOLIC ACID [Concomitant]
     Dosage: UNK, QD
  14. ASPIRIN [Concomitant]

REACTIONS (7)
  - FEMUR FRACTURE [None]
  - FALL [None]
  - UPPER LIMB FRACTURE [None]
  - INTENTIONAL DRUG MISUSE [None]
  - PAIN [None]
  - MOVEMENT DISORDER [None]
  - CATARACT OPERATION [None]
